FAERS Safety Report 6705017-X (Version None)
Quarter: 2010Q2

REPORT INFORMATION
  Report Type: 
  Country: None (occurrence: None)
  Receive Date: 20100430
  Receipt Date: 20100415
  Transmission Date: 20101027
  Serious: Yes (Other)
  Sender: FDA-Public Use
  Company Number: A0857341A

PATIENT
  Age: 59 Year
  Sex: Male

DRUGS (10)
  1. CARVEDILOL [Suspect]
  2. NEULASTA [Suspect]
     Indication: CHEMOTHERAPY
     Route: 065
  3. CLONIDINE [Concomitant]
  4. NICOTINIC ACID [Concomitant]
  5. OMEPRAZOLE [Concomitant]
  6. NIFEDIPINE [Concomitant]
  7. NITROGLYCERIN [Concomitant]
  8. ASPIRIN [Concomitant]
  9. ETOPOSIDE [Concomitant]
  10. CARBOPLATIN [Concomitant]

REACTIONS (3)
  - NEUTROPENIA [None]
  - THERAPEUTIC RESPONSE DECREASED [None]
  - WHITE BLOOD CELL COUNT DECREASED [None]
